FAERS Safety Report 10666395 (Version 5)
Quarter: 2015Q1

REPORT INFORMATION
  Report Type: Report from Study
  Country: US (occurrence: US)
  Receive Date: 20141220
  Receipt Date: 20150317
  Transmission Date: 20150720
  Serious: Yes (Hospitalization)
  Sender: FDA-Public Use
  Company Number: US-AMGEN-2014-2473

PATIENT
  Age: 68 Year
  Sex: Female

DRUGS (6)
  1. KYPROLIS [Suspect]
     Active Substance: CARFILZOMIB
     Indication: PLASMA CELL MYELOMA
     Dosage: UNK UNK, 2 TIMES/WK
     Route: 042
     Dates: start: 201406, end: 201410
  2. CYTOXAN [Concomitant]
     Active Substance: CYCLOPHOSPHAMIDE
     Indication: PLASMA CELL MYELOMA
     Dosage: UNK
  3. AREDIA [Concomitant]
     Active Substance: PAMIDRONATE DISODIUM
     Indication: BONE DISORDER
  4. DIOVAN [Concomitant]
     Active Substance: VALSARTAN
     Indication: HYPERTENSION
  5. LIPITOR [Concomitant]
     Active Substance: ATORVASTATIN CALCIUM
     Indication: BLOOD CHOLESTEROL INCREASED
  6. ASPIRIN                            /00002701/ [Concomitant]
     Active Substance: ASPIRIN
     Indication: ANTICOAGULANT THERAPY

REACTIONS (8)
  - Cerebrovascular accident [Not Recovered/Not Resolved]
  - Swelling face [Not Recovered/Not Resolved]
  - Viral infection [Recovering/Resolving]
  - Nasopharyngitis [Not Recovered/Not Resolved]
  - General physical health deterioration [Unknown]
  - Protein total increased [Unknown]
  - Oedema peripheral [Not Recovered/Not Resolved]
  - Laboratory test abnormal [Unknown]

NARRATIVE: CASE EVENT DATE: 20141104
